FAERS Safety Report 6742745-4 (Version None)
Quarter: 2010Q2

REPORT INFORMATION
  Report Type: 
  Country: None (occurrence: None)
  Receive Date: 20100526
  Receipt Date: 20100119
  Transmission Date: 20101027
  Serious: No
  Sender: FDA-Public Use
  Company Number: US-ABBOTT-10P-163-0621701-00

PATIENT
  Sex: Male
  Weight: 97.61 kg

DRUGS (12)
  1. ZEMPLAR [Suspect]
     Indication: RENAL FAILURE
     Dates: start: 20090204, end: 20090422
  2. ZEMPLAR [Suspect]
     Indication: BLOOD PARATHYROID HORMONE INCREASED
     Dates: start: 20090528
  3. ZEMPLAR [Suspect]
     Dates: start: 20090101, end: 20091201
  4. ZEMPLAR [Suspect]
     Dates: start: 20090113, end: 20090204
  5. NORVASC [Concomitant]
     Indication: HYPERTENSION
  6. REGULAR INSULIN [Concomitant]
     Indication: DIABETES MELLITUS
     Route: 058
  7. NPH INSULIN [Concomitant]
     Indication: DIABETES MELLITUS
     Route: 058
  8. ZETIA [Concomitant]
     Indication: BLOOD CHOLESTEROL INCREASED
     Dosage: UNKNOWN
  9. LEVOTHYROXINE SODIUM [Concomitant]
     Indication: HYPOTHYROIDISM
  10. LASIX [Concomitant]
     Indication: NEPHROPATHY
  11. LAXATIVE [Concomitant]
     Indication: CONSTIPATION
     Route: 065
  12. ASPIRIN [Concomitant]
     Indication: NEPHROPATHY

REACTIONS (5)
  - ASTHENIA [None]
  - FATIGUE [None]
  - HEADACHE [None]
  - NAUSEA [None]
  - VOMITING [None]
